FAERS Safety Report 8335762-4 (Version None)
Quarter: 2012Q2

REPORT INFORMATION
  Report Type: 
  Country: None (occurrence: None)
  Receive Date: 20120504
  Receipt Date: 20120430
  Transmission Date: 20120825
  Serious: No
  Sender: FDA-Public Use
  Company Number: US-BIOGENIDEC-2012BI015125

PATIENT
  Sex: Male

DRUGS (2)
  1. TYSABRI [Suspect]
     Indication: MULTIPLE SCLEROSIS
     Route: 042
     Dates: start: 20091008, end: 20100831
  2. TYSABRI [Suspect]
     Route: 042
     Dates: start: 20110301

REACTIONS (3)
  - BALANCE DISORDER [None]
  - TREMOR [None]
  - CENTRAL NERVOUS SYSTEM LESION [None]
